FAERS Safety Report 26216217 (Version 1)
Quarter: 2025Q4

REPORT INFORMATION
  Report Type: Spontaneous
  Country: CH (occurrence: CH)
  Receive Date: 20251231
  Receipt Date: 20251231
  Transmission Date: 20260118
  Serious: Yes (Life-Threatening, Hospitalization, Other)
  Sender: ALEXION PHARMACEUTICALS
  Company Number: None

PATIENT
  Age: 72 Year
  Sex: Male
  Weight: 82 kg

DRUGS (14)
  1. DAPAGLIFLOZIN [Suspect]
     Active Substance: DAPAGLIFLOZIN
     Route: 061
     Dates: end: 202503
  2. DAPAGLIFLOZIN [Suspect]
     Active Substance: DAPAGLIFLOZIN
     Dosage: UNK
     Route: 061
  3. CIPROFLOXACIN HYDROCHLORIDE [Suspect]
     Active Substance: CIPROFLOXACIN HYDROCHLORIDE
     Route: 061
     Dates: start: 2025, end: 2025
  4. NOVORAPID [Concomitant]
     Active Substance: INSULIN ASPART
  5. RYBELSUS [Concomitant]
     Active Substance: SEMAGLUTIDE
     Route: 061
  6. OZEMPIC [Concomitant]
     Active Substance: SEMAGLUTIDE
     Dates: end: 2025
  7. ATORVASTATIN CALCIUM [Concomitant]
     Active Substance: ATORVASTATIN CALCIUM
     Route: 061
     Dates: start: 2025, end: 2025
  8. LOSARTAN HELVEPHARM [Concomitant]
     Route: 061
     Dates: start: 202502
  9. TORSEMIDE [Concomitant]
     Active Substance: TORSEMIDE
     Route: 061
     Dates: start: 202502, end: 2025
  10. ATORVASTATIN [Concomitant]
     Active Substance: ATORVASTATIN
     Route: 061
     Dates: start: 202502, end: 2025
  11. LANTUS [Concomitant]
     Active Substance: INSULIN GLARGINE
     Dates: end: 2025
  12. TORSEMIDE [Concomitant]
     Active Substance: TORSEMIDE
     Route: 061
     Dates: start: 2025, end: 2025
  13. PANADOL [Concomitant]
     Active Substance: ACETAMINOPHEN
     Route: 061
     Dates: start: 202502, end: 2025
  14. SODIUM BICARBONATE [Concomitant]
     Active Substance: SODIUM BICARBONATE
     Route: 061
     Dates: start: 2025, end: 2025

REACTIONS (3)
  - Systemic candida [Recovered/Resolved]
  - Intervertebral discitis [Not Recovered/Not Resolved]
  - Urinary tract infection [Recovered/Resolved]

NARRATIVE: CASE EVENT DATE: 20250301
